FAERS Safety Report 23923350 (Version 1)
Quarter: 2024Q2

REPORT INFORMATION
  Report Type: Spontaneous
  Country: DE (occurrence: DE)
  Receive Date: 20240531
  Receipt Date: 20240531
  Transmission Date: 20240716
  Serious: Yes (Life-Threatening, Hospitalization, Other)
  Sender: FDA-Public Use
  Company Number: None

PATIENT
  Age: 60 Year
  Sex: Female

DRUGS (7)
  1. CELECOXIB [Suspect]
     Active Substance: CELECOXIB
     Indication: Pain
     Dosage: 1-0-1
     Route: 048
     Dates: start: 20240106, end: 20240111
  2. CELECOXIB [Suspect]
     Active Substance: CELECOXIB
     Dosage: 1-0-0
     Dates: end: 20240107
  3. Tilidin 50/4 [Concomitant]
     Indication: Pain
     Dosage: 1-0-1
     Dates: start: 20240106, end: 20240111
  4. LEVOTHYROXINE SODIUM [Concomitant]
     Active Substance: LEVOTHYROXINE SODIUM
     Indication: Product used for unknown indication
     Dosage: 1-0-0 SINCE APPROX. 1984
  5. IBUPROFEN [Concomitant]
     Active Substance: IBUPROFEN
     Indication: Back pain
     Dosage: TAKEN IN HIGH DOSES AT HOME
  6. ACETAMINOPHEN [Concomitant]
     Active Substance: ACETAMINOPHEN
     Indication: Back pain
     Dosage: TAKEN IN HIGH DOSES AT HOME
  7. Piritramid-hameln 7,5 mg/ml Injektionsl?sung [Concomitant]
     Indication: Pain
     Dosage: 1 AMP
     Dates: start: 20240106, end: 20240111

REACTIONS (12)
  - Pleural effusion [Recovering/Resolving]
  - Left ventricular failure [Recovering/Resolving]
  - Left ventricular dysfunction [Recovering/Resolving]
  - Pulmonary hypertension [Recovering/Resolving]
  - Renal injury [Recovering/Resolving]
  - Vomiting [Recovering/Resolving]
  - Dyspnoea [Recovering/Resolving]
  - Renal failure [Recovering/Resolving]
  - Generalised oedema [Recovering/Resolving]
  - Blood pressure increased [Recovering/Resolving]
  - Oedema [Recovering/Resolving]
  - Pulmonary embolism [Recovering/Resolving]

NARRATIVE: CASE EVENT DATE: 20240101
